FAERS Safety Report 7746860-8 (Version None)
Quarter: 2011Q3

REPORT INFORMATION
  Report Type: 
  Country: None (occurrence: None)
  Receive Date: 20110913
  Receipt Date: 20110909
  Transmission Date: 20111222
  Serious: Yes (Hospitalization)
  Sender: FDA-Public Use
  Company Number: CA-CEPHALON-2011004735

PATIENT
  Sex: Male
  Weight: 88 kg

DRUGS (2)
  1. BENDAMUSTINE HCL [Suspect]
     Indication: MANTLE CELL LYMPHOMA
     Route: 042
     Dates: start: 20110616
  2. RITUXIMAB [Concomitant]
     Route: 042
     Dates: start: 20110616

REACTIONS (1)
  - URETERIC OBSTRUCTION [None]
